FAERS Safety Report 9202440 (Version 1)
Quarter: 2013Q1

REPORT INFORMATION
  Report Type: Spontaneous
  Country: US (occurrence: None)
  Receive Date: 20130329
  Receipt Date: 20130329
  Transmission Date: 20140127
  Serious: Yes (Disabling)
  Sender: FDA-Public Use
  Company Number: None

PATIENT
  Age: 73 Year
  Sex: Female
  Weight: 68.04 kg

DRUGS (1)
  1. LEVOFLOXIN [Suspect]
     Indication: RESPIRATORY TRACT INFECTION
     Dosage: 1 TAB DAILY
     Route: 048
     Dates: start: 20130124, end: 20130127

REACTIONS (5)
  - Pain in extremity [None]
  - Arthralgia [None]
  - Joint swelling [None]
  - Local swelling [None]
  - Skin discolouration [None]
